FAERS Safety Report 4998899-3 (Version None)
Quarter: 2006Q2

REPORT INFORMATION
  Report Type: 
  Country: None (occurrence: None)
  Receive Date: 20060510
  Receipt Date: 20051114
  Transmission Date: 20061013
  Serious: Yes (Death, Hospitalization)
  Sender: FDA-Public Use
  Company Number: US-MERCK-0511USA02614

PATIENT
  Age: 83 Year
  Sex: Female
  Weight: 107 kg

DRUGS (6)
  1. VIOXX [Suspect]
     Indication: ARTHRITIS
     Route: 048
     Dates: end: 20000907
  2. DIOVAN [Concomitant]
     Route: 048
  3. ASPIRIN [Concomitant]
     Route: 065
  4. ZANTAC [Concomitant]
     Route: 048
  5. COZAAR [Concomitant]
     Route: 048
  6. CORGARD [Concomitant]
     Route: 048

REACTIONS (8)
  - BRAIN HERNIATION [None]
  - CARDIAC FAILURE CONGESTIVE [None]
  - CARDIO-RESPIRATORY ARREST [None]
  - CEREBRAL INFARCTION [None]
  - CEREBROVASCULAR ACCIDENT [None]
  - DIABETES MELLITUS [None]
  - HAEMARTHROSIS [None]
  - HAEMORRHAGIC STROKE [None]
